FAERS Safety Report 6687577-0 (Version None)
Quarter: 2010Q2

REPORT INFORMATION
  Report Type: 
  Country: None (occurrence: None)
  Receive Date: 20100416
  Receipt Date: 20100416
  Transmission Date: 20101027
  Serious: Yes (Hospitalization)
  Sender: FDA-Public Use
  Company Number: None

PATIENT
  Sex: Male
  Weight: 80 kg

DRUGS (2)
  1. CISPLATIN [Suspect]
     Dosage: 110 MG
     Dates: end: 20100303
  2. ETOPOSIDE [Suspect]
     Dosage: 450 MG
     Dates: end: 20100305

REACTIONS (7)
  - DELIRIUM [None]
  - FALL [None]
  - FATIGUE [None]
  - HYPOPHAGIA [None]
  - MENTAL STATUS CHANGES [None]
  - SEPSIS [None]
  - WALKING AID USER [None]
